FAERS Safety Report 9261346 (Version 1)
Quarter: 2013Q2

REPORT INFORMATION
  Report Type: Spontaneous
  Country: DE (occurrence: DE)
  Receive Date: 20130429
  Receipt Date: 20130429
  Transmission Date: 20140414
  Serious: Yes (Hospitalization)
  Sender: FDA-Public Use
  Company Number: DE-GLAXOSMITHKLINE-D0079534A

PATIENT
  Sex: Male
  Weight: 90 kg

DRUGS (4)
  1. VIANI [Suspect]
     Route: 055
  2. PROMETHAZINE [Suspect]
     Dosage: 300MG PER DAY
     Route: 048
  3. ALCOHOL [Suspect]
     Route: 048
  4. L-THYROXIN [Suspect]
     Route: 048

REACTIONS (1)
  - Drug abuse [Recovered/Resolved]
